FAERS Safety Report 9526210 (Version 5)
Quarter: 2014Q1

REPORT INFORMATION
  Report Type: Spontaneous
  Country: GB (occurrence: GB)
  Receive Date: 20130916
  Receipt Date: 20140319
  Transmission Date: 20141002
  Serious: Yes (Death, Other)
  Sender: FDA-Public Use
  Company Number: GB-PFIZER INC-2013262088

PATIENT
  Age: 50 Year
  Sex: Female
  Weight: 102 kg

DRUGS (5)
  1. DOXORUBICIN [Suspect]
     Indication: PRIMARY MEDIASTINAL LARGE B-CELL LYMPHOMA
     Dosage: 100 MG, UNK
     Route: 042
     Dates: start: 20070906, end: 20080206
  2. CYCLOPHOSPHAMIDE [Concomitant]
     Indication: PRIMARY MEDIASTINAL LARGE B-CELL LYMPHOMA
     Dosage: UNK
     Dates: start: 20070906, end: 20080206
  3. RITUXIMAB [Concomitant]
     Indication: PRIMARY MEDIASTINAL LARGE B-CELL LYMPHOMA
     Dates: start: 20070906, end: 20080206
  4. VINCRISTINE [Concomitant]
     Indication: PRIMARY MEDIASTINAL LARGE B-CELL LYMPHOMA
     Dosage: UNK
     Dates: start: 20070906, end: 20080206
  5. PREDNISOLONE [Concomitant]
     Indication: PRIMARY MEDIASTINAL LARGE B-CELL LYMPHOMA
     Dosage: UNK
     Dates: start: 20070906, end: 20080206

REACTIONS (2)
  - Congestive cardiomyopathy [Fatal]
  - Cardiac failure [Not Recovered/Not Resolved]
